FAERS Safety Report 9675943 (Version 1)
Quarter: 2013Q4

REPORT INFORMATION
  Report Type: Spontaneous
  Country: US (occurrence: US)
  Receive Date: 20131107
  Receipt Date: 20131107
  Transmission Date: 20140711
  Serious: Yes (Disabling)
  Sender: FDA-Public Use
  Company Number: US-PFIZER INC-2013318300

PATIENT
  Age: 38 Year
  Sex: Female
  Weight: 114 kg

DRUGS (2)
  1. LYRICA [Suspect]
     Indication: FIBROMYALGIA
     Dosage: 150 MG, 2X/DAY
     Route: 048
     Dates: start: 2005
  2. AMBIEN [Concomitant]
     Dosage: 10 MG, UNK

REACTIONS (1)
  - Lymphoedema [Not Recovered/Not Resolved]
